FAERS Safety Report 5313737-7 (Version None)
Quarter: 2007Q2

REPORT INFORMATION
  Report Type: 
  Country: None (occurrence: None)
  Receive Date: 20070426
  Receipt Date: 20070416
  Transmission Date: 20071010
  Serious: Yes (Hospitalization)
  Sender: FDA-Public Use
  Company Number: 2007-157455-NL

PATIENT
  Age: 80 Year
  Sex: Female

DRUGS (6)
  1. MIRTAZAPINE [Suspect]
     Dosage: 15 MG QD ORAL
     Route: 048
  2. NICARDIPINE HYDROCHLORIDE [Suspect]
     Dosage: 1 DF BID ORAL
     Route: 048
  3. CLOPIDOGREL BISULFATE [Suspect]
     Dosage: 75 MG QD ORAL
     Route: 048
     Dates: start: 20060415, end: 20070217
  4. AMIODARONE HYDROCHLORIDE [Suspect]
     Dosage: 5 DF WEEKLY ORAL
     Route: 048
  5. PENTOXIFYLLINE [Concomitant]
  6. FOLIC ACID [Concomitant]

REACTIONS (8)
  - ARRHYTHMIA [None]
  - FALL [None]
  - HYPOTENSION [None]
  - LOSS OF CONSCIOUSNESS [None]
  - MALAISE [None]
  - SUBARACHNOID HAEMORRHAGE [None]
  - SUBDURAL HAEMORRHAGE [None]
  - WOUND [None]
